FAERS Safety Report 9851996 (Version 1)
Quarter: 2014Q1

REPORT INFORMATION
  Report Type: Spontaneous
  Country: DE (occurrence: DE)
  Receive Date: 20140129
  Receipt Date: 20140129
  Transmission Date: 20141002
  Serious: Yes (Death)
  Sender: FDA-Public Use
  Company Number: GXKR2014DE000661

PATIENT
  Age: 79 Year
  Sex: Male
  Weight: 80 kg

DRUGS (2)
  1. AMOXICILLIN + CLAVULANATE POTASSIUM [Suspect]
     Indication: PNEUMONIA
     Dosage: 2 DF, TID (2-2-2)
     Route: 048
     Dates: start: 20140118, end: 20140119
  2. KLACID//CLARITHROMYCIN [Concomitant]
     Indication: PNEUMONIA
     Dosage: 250 MG, BID (1-0-1)
     Route: 048
     Dates: start: 20140118, end: 20140119

REACTIONS (2)
  - Renal failure acute [Fatal]
  - Acute hepatic failure [Fatal]
